FAERS Safety Report 7329575-X (Version None)
Quarter: 2011Q1

REPORT INFORMATION
  Report Type: 
  Country: None (occurrence: None)
  Receive Date: 20110303
  Receipt Date: 20110218
  Transmission Date: 20110831
  Serious: Yes (Hospitalization)
  Sender: FDA-Public Use
  Company Number: US-ACTELION-A-US2010-41766

PATIENT

DRUGS (3)
  1. VOLTAREN [Concomitant]
  2. TRACLEER [Suspect]
     Indication: PULMONARY ARTERIAL HYPERTENSION
     Dosage: UNK
     Route: 048
     Dates: start: 20100325
  3. REVATIO [Concomitant]

REACTIONS (6)
  - DYSPNOEA [None]
  - CHEST DISCOMFORT [None]
  - BRONCHITIS [None]
  - OEDEMA PERIPHERAL [None]
  - NASOPHARYNGITIS [None]
  - PLATELET COUNT DECREASED [None]
